FAERS Safety Report 7028884-1 (Version None)
Quarter: 2010Q4

REPORT INFORMATION
  Report Type: 
  Country: None (occurrence: None)
  Receive Date: 20101005
  Receipt Date: 20100928
  Transmission Date: 20110411
  Serious: Yes (Life-Threatening)
  Sender: FDA-Public Use
  Company Number: US-SANOFI-AVENTIS-2010SA058972

PATIENT
  Age: 31 Year
  Sex: Male

DRUGS (1)
  1. AMBIEN [Suspect]
     Route: 048

REACTIONS (3)
  - CARDIAC ARREST [None]
  - NEAR DROWNING [None]
  - SOMNAMBULISM [None]
